FAERS Safety Report 21134078 (Version 2)
Quarter: 2022Q3

REPORT INFORMATION
  Report Type: Spontaneous
  Country: US (occurrence: US)
  Receive Date: 20220726
  Receipt Date: 20220726
  Transmission Date: 20221026
  Serious: Yes (Other)
  Sender: FDA-Public Use
  Company Number: US-PFIZER INC-PV202200024371

PATIENT
  Age: 73 Year
  Sex: Female

DRUGS (1)
  1. METHYLPREDNISOLONE [Suspect]
     Active Substance: METHYLPREDNISOLONE
     Indication: Myelitis transverse
     Dosage: UNK

REACTIONS (4)
  - Dural arteriovenous fistula [Recovering/Resolving]
  - Condition aggravated [Recovering/Resolving]
  - Urinary incontinence [Recovering/Resolving]
  - Off label use [Unknown]
